FAERS Safety Report 8477731-X (Version None)
Quarter: 2012Q2

REPORT INFORMATION
  Report Type: 
  Country: None (occurrence: None)
  Receive Date: 20120629
  Receipt Date: 20120622
  Transmission Date: 20120825
  Serious: Yes (Hospitalization, Other)
  Sender: FDA-Public Use
  Company Number: US-BAYER-2011-072785

PATIENT
  Age: 27 Year
  Sex: Female
  Weight: 90.703 kg

DRUGS (12)
  1. YASMIN [Suspect]
     Indication: POLYCYSTIC OVARIES
     Dosage: UNK
     Dates: start: 20020101, end: 20050901
  2. YASMIN [Suspect]
     Indication: CONTRACEPTION
  3. DROSPIRENONE AND ETHINYL ESTRADIOL [Suspect]
     Indication: POLYCYSTIC OVARIES
     Dosage: UNK
     Dates: start: 20080101
  4. DILTIAZEM HYDROCHOLORIDE [Concomitant]
     Indication: HEART RATE IRREGULAR
     Dosage: UNK
     Dates: start: 20050901
  5. METHOTREXATE [Concomitant]
     Indication: RHEUMATOID ARTHRITIS
     Dosage: UNK
     Dates: start: 20040101
  6. CARDIZEM [Concomitant]
     Indication: BLOOD PRESSURE INCREASED
  7. BEXTRA [Concomitant]
     Indication: RHEUMATOID ARTHRITIS
     Dosage: UNK
     Dates: start: 20020101
  8. PREDNISONE [Concomitant]
     Indication: RHEUMATOID ARTHRITIS
     Dosage: UNK
     Dates: start: 20010101
  9. DROSPIRENONE AND ETHINYL ESTRADIOL [Suspect]
     Indication: CONTRACEPTION
  10. PLAQUENIL [Concomitant]
     Indication: RHEUMATOID ARTHRITIS
     Dosage: UNK
     Dates: start: 20040101
  11. OXYGEN [Concomitant]
  12. CELEBREX [Concomitant]
     Indication: RHEUMATOID ARTHRITIS
     Dosage: UNK
     Dates: start: 20020101, end: 20110101

REACTIONS (12)
  - PULMONARY EMBOLISM [None]
  - OEDEMA PERIPHERAL [None]
  - ANXIETY [None]
  - DEEP VEIN THROMBOSIS [None]
  - DYSPNOEA [None]
  - PALPITATIONS [None]
  - HAEMORRHAGIC OVARIAN CYST [None]
  - ANHEDONIA [None]
  - INJURY [None]
  - PAIN [None]
  - DEPRESSION [None]
  - MENTAL DISORDER [None]
